FAERS Safety Report 24199462 (Version 2)
Quarter: 2024Q3

REPORT INFORMATION
  Report Type: Spontaneous
  Country: FR (occurrence: FR)
  Receive Date: 20240812
  Receipt Date: 20240920
  Transmission Date: 20241016
  Serious: Yes (Hospitalization)
  Sender: ASTELLAS
  Company Number: FR-ASTELLAS-2024US022851

PATIENT
  Age: 81 Year
  Sex: Male
  Weight: 85 kg

DRUGS (12)
  1. CRESEMBA [Suspect]
     Active Substance: ISAVUCONAZONIUM SULFATE
     Indication: Pulmonary mucormycosis
     Dosage: 200 MG, THRICE DAILY
     Route: 042
     Dates: start: 20240703, end: 20240705
  2. CRESEMBA [Suspect]
     Active Substance: ISAVUCONAZONIUM SULFATE
     Dosage: 200 MG IN THE MORNING
     Route: 042
     Dates: start: 20240706, end: 20240715
  3. MEROPENEM [Concomitant]
     Active Substance: MEROPENEM
     Indication: Product used for unknown indication
     Route: 065
  4. METOCLOPRAMIDE [Concomitant]
     Active Substance: METOCLOPRAMIDE
     Indication: Product used for unknown indication
     Route: 065
  5. CETIRIZINE [Concomitant]
     Active Substance: CETIRIZINE HYDROCHLORIDE
     Indication: Product used for unknown indication
     Route: 065
  6. ENOXAPARIN SODIUM [Concomitant]
     Active Substance: ENOXAPARIN SODIUM
     Indication: Product used for unknown indication
     Route: 065
  7. MIRTAZAPINE [Concomitant]
     Active Substance: MIRTAZAPINE
     Indication: Product used for unknown indication
     Route: 065
  8. VORICONAZOLE [Concomitant]
     Active Substance: VORICONAZOLE
     Indication: Product used for unknown indication
     Route: 065
  9. FUROSEMIDE [Concomitant]
     Active Substance: FUROSEMIDE
     Indication: Product used for unknown indication
     Route: 065
  10. VIDAZA [Concomitant]
     Active Substance: AZACITIDINE
     Indication: Product used for unknown indication
     Route: 065
  11. VIDAZA [Concomitant]
     Active Substance: AZACITIDINE
     Route: 065
  12. VIDAZA [Concomitant]
     Active Substance: AZACITIDINE
     Route: 065

REACTIONS (2)
  - Mixed liver injury [Recovered/Resolved]
  - Petechiae [Recovering/Resolving]

NARRATIVE: CASE EVENT DATE: 20240711
